FAERS Safety Report 13097278 (Version 2)
Quarter: 2017Q4

REPORT INFORMATION
  Report Type: Spontaneous
  Country: IT (occurrence: IT)
  Receive Date: 20170109
  Receipt Date: 20171009
  Transmission Date: 20180320
  Serious: Yes (Hospitalization)
  Sender: FDA-Public Use
  Company Number: IT-PFIZER INC-2017003578

PATIENT
  Age: 72 Year
  Sex: Female

DRUGS (13)
  1. RANITIDINE. [Concomitant]
     Active Substance: RANITIDINE
     Dosage: UNK
     Dates: start: 20161110, end: 20161110
  2. ALOXI [Concomitant]
     Active Substance: PALONOSETRON HYDROCHLORIDE
     Dosage: UNK
     Dates: start: 20161110, end: 20161110
  3. DECADRON [Concomitant]
     Active Substance: DEXAMETHASONE
     Dosage: UNK
     Dates: start: 20161110, end: 20161110
  4. CARDIOASPIRIN [Concomitant]
     Active Substance: ASPIRIN
     Dosage: UNK
  5. SEQUACOR [Concomitant]
     Active Substance: BISOPROLOL
     Dosage: UNK
  6. BONVIVA [Concomitant]
     Active Substance: IBANDRONATE SODIUM
     Dosage: UNK
  7. LEVOPRAID (LEVOSULPIRIDE) [Concomitant]
     Active Substance: LEVOSULPIRIDE
     Dosage: UNK
     Dates: start: 20161110, end: 20161110
  8. TRIMETON [Concomitant]
     Active Substance: CHLORPHENIRAMINE MALEATE
     Dosage: UNK
     Dates: start: 20161110, end: 20161110
  9. CARBOPLATIN. [Suspect]
     Active Substance: CARBOPLATIN
     Indication: ENDOMETRIAL ADENOCARCINOMA
     Dosage: 455 MG, SINGLE
     Route: 042
     Dates: start: 20161110, end: 20161110
  10. PACLITAXEL ACCORD [Suspect]
     Active Substance: PACLITAXEL
     Indication: ENDOMETRIAL ADENOCARCINOMA
     Dosage: 292 MG, SINGLE
     Route: 042
     Dates: start: 20161110, end: 20161110
  11. SIVASTIN [Concomitant]
     Active Substance: SIMVASTATIN
     Dosage: UNK
  12. OMEPRAZEN [Concomitant]
     Active Substance: OMEPRAZOLE
     Dosage: UNK
  13. DIBASE [Concomitant]
     Active Substance: CHOLECALCIFEROL
     Dosage: UNK

REACTIONS (1)
  - Pancytopenia [Recovered/Resolved]

NARRATIVE: CASE EVENT DATE: 20161116
